FAERS Safety Report 9449101 (Version 1)
Quarter: 2013Q3

REPORT INFORMATION
  Report Type: Spontaneous
  Country: DE (occurrence: DE)
  Receive Date: 20130808
  Receipt Date: 20130808
  Transmission Date: 20140515
  Serious: Yes (Hospitalization, Other)
  Sender: FDA-Public Use
  Company Number: DE-MYLANLABS-2013S1016695

PATIENT
  Age: 1 Day
  Sex: Male
  Weight: 3.32 kg

DRUGS (2)
  1. PAROXETIN [Suspect]
     Dosage: 60 [MG/D ]
     Route: 064
     Dates: start: 20071109, end: 20080810
  2. CLONAZEPAM [Suspect]
     Dosage: 2 [MG/D ]
     Route: 064
     Dates: start: 20071109, end: 20080810

REACTIONS (3)
  - Myoclonus [Recovered/Resolved]
  - Hypertonia neonatal [Recovered/Resolved]
  - Exposure during pregnancy [Unknown]
